FAERS Safety Report 7444547-2 (Version None)
Quarter: 2011Q2

REPORT INFORMATION
  Report Type: 
  Country: None (occurrence: None)
  Receive Date: 20110427
  Receipt Date: 20110427
  Transmission Date: 20111010
  Serious: No
  Sender: FDA-Public Use
  Company Number: None

PATIENT
  Sex: Male
  Weight: 81.6475 kg

DRUGS (1)
  1. ZOLPIDEM TARTRATE [Suspect]
     Indication: INSOMNIA
     Dosage: 1 AT BEDTIME
     Dates: start: 20110408, end: 20110411

REACTIONS (5)
  - CHEST PAIN [None]
  - FEELING ABNORMAL [None]
  - MALAISE [None]
  - DRUG INEFFECTIVE [None]
  - TREMOR [None]
